FAERS Safety Report 10676633 (Version 1)
Quarter: 2014Q4

REPORT INFORMATION
  Report Type: Spontaneous
  Country: AU (occurrence: AU)
  Receive Date: 20141226
  Receipt Date: 20141226
  Transmission Date: 20150529
  Serious: Yes (Other)
  Sender: FDA-Public Use
  Company Number: AU-AMGEN-AUSSP2014099800

PATIENT
  Age: 39 Year
  Sex: Female

DRUGS (5)
  1. IPILIMUMAB [Concomitant]
     Active Substance: IPILIMUMAB
     Dosage: 3 MG/KG, Q3WK
  2. CELECOXIB. [Concomitant]
     Active Substance: CELECOXIB
  3. XGEVA [Suspect]
     Active Substance: DENOSUMAB
     Indication: BONE PAIN
     Dosage: 120 MG, Q4WK
     Route: 065
  4. DACARBAZINE. [Concomitant]
     Active Substance: DACARBAZINE
     Indication: MALIGNANT MELANOMA
     Dosage: 850 MG/M2, ONE TIME DOSE
  5. PREGABALIN. [Concomitant]
     Active Substance: PREGABALIN

REACTIONS (5)
  - Metastases to central nervous system [Recovered/Resolved]
  - Eastern Cooperative Oncology Group performance status worsened [Recovered/Resolved]
  - Thrombocytopenia [Recovered/Resolved]
  - Leukoerythroblastic anaemia [Recovered/Resolved]
  - Bone pain [Recovered/Resolved]
